FAERS Safety Report 4781051-4 (Version None)
Quarter: 2005Q3

REPORT INFORMATION
  Report Type: 
  Country: None (occurrence: None)
  Receive Date: 20050926
  Receipt Date: 20050922
  Transmission Date: 20060218
  Serious: Yes (Hospitalization)
  Sender: FDA-Public Use
  Company Number: TCI2005A03871

PATIENT
  Age: 80 Year
  Sex: Male

DRUGS (2)
  1. LANSAP 800 (LANSOPRAZOLE, CLARITHROMYCIN, AMOXICILLIN) (PREPARATION FO [Suspect]
     Indication: HELICOBACTER INFECTION
     Dosage: 1 CARD (0.5 CARD, 2 IN 1 D); PER ORAL
     Route: 048
     Dates: start: 20050826, end: 20050828
  2. CONIEL (BENIDIPINE HYDROCHLORIDE) (TABLETS) [Concomitant]

REACTIONS (1)
  - COLITIS [None]
